FAERS Safety Report 7582399-0 (Version None)
Quarter: 2011Q2

REPORT INFORMATION
  Report Type: 
  Country: None (occurrence: None)
  Receive Date: 20110630
  Receipt Date: 20101012
  Transmission Date: 20111010
  Serious: Yes (Death, Hospitalization)
  Sender: FDA-Public Use
  Company Number: KR-BAYER-2011-004385

PATIENT
  Age: 57 Year
  Sex: Male
  Weight: 68 kg

DRUGS (18)
  1. ERLOTINIB HYDROCHLORIDE [Suspect]
     Dosage: 100 MG, QD
     Route: 048
     Dates: start: 20110105, end: 20110106
  2. TRAVOCORT [Concomitant]
     Indication: PROPHYLAXIS
     Dosage: UNK
     Route: 061
     Dates: start: 20101130
  3. ERLOTINIB HYDROCHLORIDE [Suspect]
     Indication: HEPATIC NEOPLASM MALIGNANT
     Dosage: UNK
     Route: 048
     Dates: start: 20100830
  4. SORAFENIB (RAF KINASE INHIBITOR) [Suspect]
     Dosage: 400 MG, QD
     Route: 048
     Dates: start: 20101123, end: 20101214
  5. ALIMENTARY TRACT AND METABOLISM [Concomitant]
     Indication: PROPHYLAXIS
     Dosage: 4 TABS
     Route: 048
     Dates: start: 20101104
  6. OXYCODONE HCL [Concomitant]
     Indication: MYALGIA
     Dosage: DAILY DOSE 30 MG
     Route: 048
     Dates: start: 20101014
  7. PHYSIOGEL [CALCIUM,GELATINE HYDROLYSATE,MAGNESIUM,POTASSIUM,SODIUM CHL [Concomitant]
     Indication: PROPHYLAXIS
     Dosage: UNK
     Route: 061
     Dates: start: 20101130
  8. VITAMIN B COMPLEX WITH VITAMIN C [Concomitant]
     Indication: PROPHYLAXIS
     Dosage: 1 TAB
     Route: 048
     Dates: start: 20101104
  9. SORAFENIB (RAF KINASE INHIBITOR) [Suspect]
     Dosage: 400 MG, BID
     Route: 048
     Dates: start: 20110105, end: 20110106
  10. SODIUM BICARBONATE [Concomitant]
     Indication: PROPHYLAXIS
     Dosage: 100 ML
     Route: 048
     Dates: start: 20101221
  11. SORAFENIB (RAF KINASE INHIBITOR) [Suspect]
     Indication: HEPATIC NEOPLASM MALIGNANT
     Dosage: UNK
     Dates: start: 20100830
  12. ERLOTINIB HYDROCHLORIDE [Suspect]
  13. SORAFENIB (RAF KINASE INHIBITOR) [Suspect]
     Dosage: 400 MG, BID
     Route: 048
     Dates: start: 20101215, end: 20110104
  14. URSODIOL [Concomitant]
     Indication: PROPHYLAXIS
     Dosage: DAILY DOSE 400 MG
     Route: 048
     Dates: start: 20101104
  15. NIVEA [Concomitant]
     Indication: PROPHYLAXIS
     Dosage: UNK
     Route: 061
     Dates: start: 20101130
  16. ERLOTINIB HYDROCHLORIDE [Suspect]
     Dosage: 100 MG, QD
     Route: 048
     Dates: start: 20101123, end: 20110105
  17. LEGALON [Concomitant]
     Indication: PROPHYLAXIS
     Dosage: DAILY DOSE 280 MG
     Route: 048
     Dates: start: 20101104
  18. NERISONE [Concomitant]
     Indication: PROPHYLAXIS
     Dosage: UNK
     Route: 061
     Dates: start: 20101130

REACTIONS (5)
  - PNEUMONIA [None]
  - MENTAL DISORDER [None]
  - RENAL FAILURE ACUTE [None]
  - DISSEMINATED INTRAVASCULAR COAGULATION [None]
  - SEPSIS [None]
